FAERS Safety Report 18821999 (Version 2)
Quarter: 2021Q1

REPORT INFORMATION
  Report Type: Spontaneous
  Country: US (occurrence: US)
  Receive Date: 20210202
  Receipt Date: 20210330
  Transmission Date: 20210419
  Serious: Yes (Other)
  Sender: FDA-Public Use
  Company Number: US-PFIZER INC-2021082936

PATIENT
  Age: 56 Year
  Sex: Female
  Weight: 68.03 kg

DRUGS (3)
  1. ESTRADIOL. [Concomitant]
     Active Substance: ESTRADIOL
     Indication: MENOPAUSE
     Dosage: 1 MG, 1X/DAY
  2. LISINOPRIL. [Concomitant]
     Active Substance: LISINOPRIL
     Indication: BLOOD PRESSURE INCREASED
     Dosage: 10 MG, 1X/DAY
  3. DEPO?MEDROL [Suspect]
     Active Substance: METHYLPREDNISOLONE ACETATE
     Dosage: UNK, SINGLE
     Dates: start: 202002, end: 202002

REACTIONS (7)
  - Reaction to excipient [Unknown]
  - Drug hypersensitivity [Unknown]
  - Periarthritis [Recovered/Resolved]
  - Dizziness [Unknown]
  - Flushing [Unknown]
  - Angioedema [Unknown]
  - Dysphonia [Unknown]

NARRATIVE: CASE EVENT DATE: 202002
